FAERS Safety Report 16410388 (Version 1)
Quarter: 2019Q2

REPORT INFORMATION
  Report Type: Spontaneous
  Country: US (occurrence: US)
  Receive Date: 20190610
  Receipt Date: 20190610
  Transmission Date: 20190711
  Serious: No
  Sender: FDA-Public Use
  Company Number: US-PFIZER INC-2019136098

PATIENT
  Age: 12 Year
  Sex: Male
  Weight: 23.59 kg

DRUGS (2)
  1. GENOTROPIN [Suspect]
     Active Substance: SOMATROPIN
     Indication: GROWTH FAILURE
     Dosage: 1.2 MG, DAILY
     Route: 058
     Dates: start: 20190220
  2. GENOTROPIN [Suspect]
     Active Substance: SOMATROPIN
     Indication: GROWTH HORMONE DEFICIENCY
     Dosage: 1.0 MG, UNK

REACTIONS (5)
  - Dry skin [Unknown]
  - Headache [Unknown]
  - Erythema [Unknown]
  - Poor quality device used [Unknown]
  - Product dose omission [Unknown]
